FAERS Safety Report 10105878 (Version 1)
Quarter: 2014Q2

REPORT INFORMATION
  Report Type: Spontaneous
  Country: GB (occurrence: GB)
  Receive Date: 20140424
  Receipt Date: 20140424
  Transmission Date: 20141212
  Serious: Yes (Hospitalization, Other)
  Sender: FDA-Public Use
  Company Number: PHHY2014GB046723

PATIENT
  Age: 35 Year
  Sex: Female
  Weight: 65 kg

DRUGS (6)
  1. CAPECITABINE [Suspect]
     Indication: BREAST CANCER METASTATIC
     Dosage: 2150 MG, BID
     Route: 048
     Dates: start: 20140307, end: 20140309
  2. VINORELBINE [Suspect]
     Indication: BREAST CANCER METASTATIC
     Dosage: 100 MG, QW
     Route: 048
     Dates: start: 20140307, end: 20140309
  3. DEXAMETHASONE [Concomitant]
  4. DOCETAXEL [Concomitant]
  5. METOCLOPRAMIDE [Concomitant]
     Dates: end: 20140124
  6. ZOLEDRONIC ACID [Concomitant]

REACTIONS (4)
  - Oromandibular dystonia [Recovered/Resolved with Sequelae]
  - Facial pain [Recovered/Resolved with Sequelae]
  - Trismus [Recovered/Resolved with Sequelae]
  - Speech disorder [Recovered/Resolved with Sequelae]
